FAERS Safety Report 6127249-4 (Version None)
Quarter: 2009Q1

REPORT INFORMATION
  Report Type: 
  Country: None (occurrence: None)
  Receive Date: 20090317
  Receipt Date: 20090313
  Transmission Date: 20090719
  Serious: Yes (Hospitalization, Other)
  Sender: FDA-Public Use
  Company Number: 2009S1003276

PATIENT
  Age: 34 Year
  Sex: Female

DRUGS (3)
  1. CEFUROXIME [Suspect]
     Indication: URINARY TRACT INFECTION
  2. CIPROFLOXACIN [Suspect]
     Indication: URINARY TRACT INFECTION
  3. LEVONORGESTREL [Suspect]
     Indication: CONTRACEPTION
     Dosage: 20 UG; ;INTRAUTERINE
     Route: 015

REACTIONS (9)
  - ABDOMINAL PAIN LOWER [None]
  - AMENORRHOEA [None]
  - DRUG INEFFECTIVE [None]
  - IUD MIGRATION [None]
  - NAUSEA [None]
  - STAPHYLOCOCCAL SEPSIS [None]
  - SUPRAPUBIC PAIN [None]
  - URINARY TRACT INFECTION [None]
  - VOMITING [None]
